FAERS Safety Report 6607333-9 (Version None)
Quarter: 2010Q1

REPORT INFORMATION
  Report Type: 
  Country: None (occurrence: None)
  Receive Date: 20100301
  Receipt Date: 20100217
  Transmission Date: 20100710
  Serious: Yes (Other)
  Sender: FDA-Public Use
  Company Number: US-BIOGENIDEC-2009BI042399

PATIENT
  Age: 53 Year
  Sex: Female
  Weight: 90 kg

DRUGS (2)
  1. TYSABRI [Suspect]
     Indication: MULTIPLE SCLEROSIS
     Route: 042
     Dates: start: 20070608, end: 20091201
  2. TYSABRI [Suspect]
     Route: 042
     Dates: start: 20090101, end: 20090201

REACTIONS (2)
  - BREAST CANCER [None]
  - MULTIPLE SCLEROSIS RELAPSE [None]
